FAERS Safety Report 6295055-6 (Version None)
Quarter: 2009Q3

REPORT INFORMATION
  Report Type: 
  Country: None (occurrence: None)
  Receive Date: 20090731
  Receipt Date: 20090731
  Transmission Date: 20100115
  Serious: Yes (Other)
  Sender: FDA-Public Use
  Company Number: None

PATIENT
  Age: 25 Year
  Sex: Female
  Weight: 58.9676 kg

DRUGS (1)
  1. CICLOPIROX CREAM 0.77% E,FOUGERA + CO / ALTANA INC [Suspect]
     Indication: RASH
     Dosage: AS NEEDED TWICE A DAY TOP
     Route: 061

REACTIONS (5)
  - BLOOD ALCOHOL INCREASED [None]
  - DRUG EXPOSURE DURING PREGNANCY [None]
  - FALSE POSITIVE LABORATORY RESULT [None]
  - PREMATURE LABOUR [None]
  - PREMATURE SEPARATION OF PLACENTA [None]
